FAERS Safety Report 12525201 (Version 1)
Quarter: 2016Q3

REPORT INFORMATION
  Report Type: Spontaneous
  Country: TR (occurrence: TR)
  Receive Date: 20160704
  Receipt Date: 20160704
  Transmission Date: 20161109
  Serious: Yes (Hospitalization, Other)
  Sender: FDA-Public Use
  Company Number: TR-JNJFOC-20160627050

PATIENT
  Age: 31 Year
  Sex: Female
  Weight: 85 kg

DRUGS (5)
  1. SIMPONI [Suspect]
     Active Substance: GOLIMUMAB
     Indication: RHEUMATOID ARTHRITIS
     Route: 058
  2. SIMPONI [Suspect]
     Active Substance: GOLIMUMAB
     Indication: RHEUMATOID ARTHRITIS
     Dosage: THE LAST DOSE ADMINISTERED 1 MONTH AGO
     Route: 058
  3. REVOLADE [Concomitant]
     Active Substance: ELTROMBOPAG
     Dosage: DECREASED FROM 75 TO 50
     Route: 065
  4. INH [Concomitant]
     Active Substance: ISONIAZID
     Route: 065
  5. PREDNOL [Concomitant]
     Active Substance: METHYLPREDNISOLONE
     Route: 065

REACTIONS (4)
  - Epistaxis [Recovered/Resolved]
  - Jaundice [Recovered/Resolved]
  - Platelet count decreased [Recovered/Resolved]
  - Weight increased [Unknown]

NARRATIVE: CASE EVENT DATE: 20160617
